FAERS Safety Report 6942896-5 (Version None)
Quarter: 2010Q3

REPORT INFORMATION
  Report Type: 
  Country: None (occurrence: None)
  Receive Date: 20100826
  Receipt Date: 20100816
  Transmission Date: 20110219
  Serious: Yes (Other)
  Sender: FDA-Public Use
  Company Number: JP-ROCHE-721723

PATIENT
  Sex: Male
  Weight: 70 kg

DRUGS (9)
  1. ACTEMRA [Suspect]
     Indication: RHEUMATOID ARTHRITIS
     Route: 041
     Dates: start: 20080724, end: 20080724
  2. ACTEMRA [Suspect]
     Route: 041
     Dates: start: 20080827, end: 20080827
  3. ACTEMRA [Suspect]
     Route: 041
     Dates: start: 20081022, end: 20081022
  4. ACTEMRA [Suspect]
     Route: 041
     Dates: start: 20081119, end: 20081119
  5. ACTEMRA [Suspect]
     Route: 041
     Dates: start: 20081217, end: 20081217
  6. ACTEMRA [Suspect]
     Route: 041
     Dates: start: 20090114, end: 20090114
  7. ACTEMRA [Suspect]
     Dosage: NOTE:DOSAGE IS UNCERTAIN.
     Route: 041
  8. PREDONINE [Concomitant]
     Route: 048
  9. VOLTAREN [Concomitant]
     Route: 054

REACTIONS (2)
  - HERPES ZOSTER [None]
  - LARGE INTESTINE CARCINOMA [None]
